FAERS Safety Report 5890142-6 (Version None)
Quarter: 2008Q3

REPORT INFORMATION
  Report Type: 
  Country: None (occurrence: None)
  Receive Date: 20080919
  Receipt Date: 20080908
  Transmission Date: 20090109
  Serious: Yes (Other)
  Sender: FDA-Public Use
  Company Number: JP-PFIZER INC-2008069766

PATIENT
  Age: 48 Year
  Sex: Male

DRUGS (1)
  1. ZOLOFT [Suspect]
     Indication: DEPRESSION
     Route: 048

REACTIONS (3)
  - HALLUCINATION, AUDITORY [None]
  - HEARING IMPAIRED [None]
  - TYMPANIC MEMBRANE PERFORATION [None]
